FAERS Safety Report 8480196-5 (Version None)
Quarter: 2012Q2

REPORT INFORMATION
  Report Type: 
  Country: None (occurrence: None)
  Receive Date: 20120629
  Receipt Date: 20120625
  Transmission Date: 20120825
  Serious: Yes (Life-Threatening, Hospitalization, Other)
  Sender: FDA-Public Use
  Company Number: DE-MERCK-1204DEU00094

PATIENT
  Age: 81 Year
  Sex: Male
  Weight: 88 kg

DRUGS (1)
  1. JANUMET [Suspect]
     Indication: DIABETES MELLITUS
     Route: 048
     Dates: end: 20111201

REACTIONS (27)
  - GASTROINTESTINAL ANGIODYSPLASIA [None]
  - MICROCYTIC ANAEMIA [None]
  - CHOLELITHIASIS [None]
  - ACUTE MYOCARDIAL INFARCTION [None]
  - RENAL FAILURE [None]
  - RECTAL HAEMORRHAGE [None]
  - METABOLIC ACIDOSIS [None]
  - RESPIRATORY FAILURE [None]
  - PNEUMONIA [None]
  - DEHYDRATION [None]
  - PERIPHERAL ARTERIAL OCCLUSIVE DISEASE [None]
  - DIVERTICULUM INTESTINAL [None]
  - ENTHESOPATHY [None]
  - OSTEOARTHRITIS [None]
  - SYSTEMIC INFLAMMATORY RESPONSE SYNDROME [None]
  - SHOCK HAEMORRHAGIC [None]
  - AORTIC ANEURYSM [None]
  - HYPERTENSION [None]
  - HYPERURICAEMIA [None]
  - HYPERTHYROIDISM [None]
  - HYPERLIPIDAEMIA [None]
  - GASTROENTERITIS [None]
  - MYOCARDIAL ISCHAEMIA [None]
  - RIGHT VENTRICULAR FAILURE [None]
  - CONJUNCTIVITIS [None]
  - GASTRITIS HAEMORRHAGIC [None]
  - ECZEMA [None]
